FAERS Safety Report 24334322 (Version 1)
Quarter: 2024Q3

REPORT INFORMATION
  Report Type: Spontaneous
  Country: CA (occurrence: CA)
  Receive Date: 20240918
  Receipt Date: 20240918
  Transmission Date: 20241017
  Serious: Yes (Other)
  Sender: BAUSCH AND LOMB
  Company Number: CA-BAUSCH-BL-2024-013649

PATIENT
  Age: 53 Year
  Sex: Male

DRUGS (182)
  1. BUDESONIDE [Suspect]
     Active Substance: BUDESONIDE
     Indication: Colitis ulcerative
     Route: 048
  2. BUDESONIDE [Suspect]
     Active Substance: BUDESONIDE
     Route: 065
  3. BUDESONIDE [Suspect]
     Active Substance: BUDESONIDE
     Route: 065
  4. BUDESONIDE [Suspect]
     Active Substance: BUDESONIDE
     Route: 065
  5. BUDESONIDE [Suspect]
     Active Substance: BUDESONIDE
     Route: 048
  6. BUDESONIDE [Suspect]
     Active Substance: BUDESONIDE
     Route: 048
  7. BUDESONIDE [Suspect]
     Active Substance: BUDESONIDE
     Route: 048
  8. HYDROCORTISONE [Suspect]
     Active Substance: HYDROCORTISONE\HYDROCORTISONE ACETATE
     Indication: Colitis ulcerative
     Route: 065
  9. HYDROCORTISONE [Suspect]
     Active Substance: HYDROCORTISONE\HYDROCORTISONE ACETATE
     Route: 065
  10. HYDROCORTISONE [Suspect]
     Active Substance: HYDROCORTISONE\HYDROCORTISONE ACETATE
     Route: 065
  11. HYDROCORTISONE [Suspect]
     Active Substance: HYDROCORTISONE\HYDROCORTISONE ACETATE
     Route: 065
  12. HYDROCORTISONE [Suspect]
     Active Substance: HYDROCORTISONE\HYDROCORTISONE ACETATE
     Indication: Colitis ulcerative
     Route: 048
  13. HYDROCORTISONE [Suspect]
     Active Substance: HYDROCORTISONE\HYDROCORTISONE ACETATE
     Route: 048
  14. HYDROCORTISONE [Suspect]
     Active Substance: HYDROCORTISONE\HYDROCORTISONE ACETATE
     Route: 048
  15. HYDROCORTISONE [Suspect]
     Active Substance: HYDROCORTISONE\HYDROCORTISONE ACETATE
     Route: 048
  16. MESALAMINE [Suspect]
     Active Substance: MESALAMINE
     Indication: Colitis ulcerative
     Dosage: DURATION: 243
     Route: 065
  17. MESALAMINE [Suspect]
     Active Substance: MESALAMINE
     Route: 048
  18. MESALAMINE [Suspect]
     Active Substance: MESALAMINE
     Route: 065
  19. MESALAMINE [Suspect]
     Active Substance: MESALAMINE
     Route: 065
  20. MESALAMINE [Suspect]
     Active Substance: MESALAMINE
     Route: 065
  21. MESALAMINE [Suspect]
     Active Substance: MESALAMINE
     Route: 065
  22. MESALAMINE [Suspect]
     Active Substance: MESALAMINE
     Route: 065
  23. MESALAMINE [Suspect]
     Active Substance: MESALAMINE
     Route: 065
  24. MESALAMINE [Suspect]
     Active Substance: MESALAMINE
     Dosage: MESALAZINE
     Route: 065
  25. MESALAMINE [Suspect]
     Active Substance: MESALAMINE
     Dosage: MESALAZINE
     Route: 065
  26. MESALAMINE [Suspect]
     Active Substance: MESALAMINE
     Dosage: MESALAZINE
     Route: 065
  27. MESALAMINE [Suspect]
     Active Substance: MESALAMINE
     Dosage: MESALAZINE
     Route: 048
  28. MESALAMINE [Suspect]
     Active Substance: MESALAMINE
     Dosage: MESALAZINE
     Route: 048
  29. MESALAMINE [Suspect]
     Active Substance: MESALAMINE
     Dosage: MESALAZINE
     Route: 065
  30. MESALAMINE [Suspect]
     Active Substance: MESALAMINE
     Dosage: MESALAZINE
     Route: 065
  31. MESALAMINE [Suspect]
     Active Substance: MESALAMINE
     Dosage: MESALAZINE
     Route: 048
  32. MESALAMINE [Suspect]
     Active Substance: MESALAMINE
     Dosage: MESALAZINE
     Route: 065
  33. MESALAMINE [Suspect]
     Active Substance: MESALAMINE
     Dosage: MESALAZINE
     Route: 048
  34. MESALAMINE [Suspect]
     Active Substance: MESALAMINE
     Dosage: MESALAZINE
     Route: 065
  35. MESALAMINE [Suspect]
     Active Substance: MESALAMINE
     Dosage: MESALAZINE
     Route: 065
  36. MESALAMINE [Suspect]
     Active Substance: MESALAMINE
     Dosage: MESALAZINE
     Route: 048
  37. MESALAMINE [Suspect]
     Active Substance: MESALAMINE
     Dosage: MESALAZINE
     Route: 065
  38. MESALAMINE [Suspect]
     Active Substance: MESALAMINE
     Dosage: MESALAZINE
     Route: 065
  39. MESALAMINE [Suspect]
     Active Substance: MESALAMINE
     Dosage: MESALAZINE
     Route: 048
  40. MESALAMINE [Suspect]
     Active Substance: MESALAMINE
     Dosage: MESALAZINE
     Route: 065
  41. MESALAMINE [Suspect]
     Active Substance: MESALAMINE
     Dosage: MESALAZINE
     Route: 065
  42. MESALAMINE [Suspect]
     Active Substance: MESALAMINE
     Dosage: MESALAZINE
     Route: 065
  43. MESALAMINE [Suspect]
     Active Substance: MESALAMINE
     Dosage: MESALAZINE
     Route: 065
  44. MESALAMINE [Suspect]
     Active Substance: MESALAMINE
     Dosage: MESALAZINE
     Route: 065
  45. MESALAMINE [Suspect]
     Active Substance: MESALAMINE
     Dosage: MESALAZINE
     Route: 065
  46. MESALAMINE [Suspect]
     Active Substance: MESALAMINE
     Dosage: MESALAZINE
     Route: 065
  47. METFORMIN [Suspect]
     Active Substance: METFORMIN HYDROCHLORIDE
     Indication: Product used for unknown indication
     Route: 065
  48. CORTISONE [Suspect]
     Active Substance: CORTISONE
     Indication: Crohn^s disease
     Route: 065
  49. CORTISONE [Suspect]
     Active Substance: CORTISONE
     Indication: Colitis ulcerative
     Route: 048
  50. CORTISONE [Suspect]
     Active Substance: CORTISONE
     Route: 048
  51. CORTISONE [Suspect]
     Active Substance: CORTISONE
     Route: 048
  52. CORTISONE [Suspect]
     Active Substance: CORTISONE
     Route: 048
  53. CORTISONE [Suspect]
     Active Substance: CORTISONE
     Route: 048
  54. ADALIMUMAB [Suspect]
     Active Substance: ADALIMUMAB
     Indication: Crohn^s disease
     Dosage: SOLUTION SUBCUTANEOUS
     Route: 058
  55. ADALIMUMAB [Suspect]
     Active Substance: ADALIMUMAB
     Indication: Colitis ulcerative
     Route: 048
  56. ADALIMUMAB [Suspect]
     Active Substance: ADALIMUMAB
     Route: 048
  57. ADALIMUMAB [Suspect]
     Active Substance: ADALIMUMAB
     Route: 065
  58. ALBENDAZOLE [Suspect]
     Active Substance: ALBENDAZOLE
     Indication: Deep vein thrombosis
     Route: 042
  59. ALBENDAZOLE [Suspect]
     Active Substance: ALBENDAZOLE
     Indication: Colitis ulcerative
  60. ASACOL [Suspect]
     Active Substance: MESALAMINE
     Indication: Colitis ulcerative
     Route: 065
  61. ASACOL [Suspect]
     Active Substance: MESALAMINE
     Route: 065
  62. ASACOL [Suspect]
     Active Substance: MESALAMINE
     Route: 065
  63. ASACOL [Suspect]
     Active Substance: MESALAMINE
     Route: 065
  64. ASACOL [Suspect]
     Active Substance: MESALAMINE
     Route: 065
  65. ASACOL [Suspect]
     Active Substance: MESALAMINE
     Route: 048
  66. ASACOL [Suspect]
     Active Substance: MESALAMINE
     Route: 065
  67. ASACOL [Suspect]
     Active Substance: MESALAMINE
     Route: 065
  68. ASACOL [Suspect]
     Active Substance: MESALAMINE
     Route: 065
  69. ASACOL [Suspect]
     Active Substance: MESALAMINE
     Route: 065
  70. ASACOL [Suspect]
     Active Substance: MESALAMINE
     Route: 065
  71. ASACOL [Suspect]
     Active Substance: MESALAMINE
     Route: 065
  72. ASACOL [Suspect]
     Active Substance: MESALAMINE
     Route: 065
  73. ASPIRIN [Suspect]
     Active Substance: ASPIRIN
     Indication: Product used for unknown indication
     Route: 065
  74. CANDESARTAN [Suspect]
     Active Substance: CANDESARTAN
     Indication: Product used for unknown indication
     Route: 048
  75. AZD-1222 [Suspect]
     Active Substance: AZD-1222
     Indication: COVID-19 immunisation
     Route: 065
  76. AZD-1222 [Suspect]
     Active Substance: AZD-1222
     Route: 065
  77. AZD-1222 [Suspect]
     Active Substance: AZD-1222
     Route: 065
  78. AZD-1222 [Suspect]
     Active Substance: AZD-1222
     Route: 065
  79. CORTIFOAM [Suspect]
     Active Substance: HYDROCORTISONE ACETATE
     Indication: Deep vein thrombosis
     Dosage: AEROSOL, FOAM
     Route: 065
  80. CORTIFOAM [Suspect]
     Active Substance: HYDROCORTISONE ACETATE
     Indication: Colitis ulcerative
     Dosage: AEROSOL, FOAM
     Route: 065
  81. CORTIFOAM [Suspect]
     Active Substance: HYDROCORTISONE ACETATE
     Dosage: AEROSOL, FOAM
     Route: 048
  82. CORTIFOAM [Suspect]
     Active Substance: HYDROCORTISONE ACETATE
     Route: 048
  83. CORTIFOAM [Suspect]
     Active Substance: HYDROCORTISONE ACETATE
     Dosage: AEROSOL, FOAM
     Route: 048
  84. CORTIFOAM [Suspect]
     Active Substance: HYDROCORTISONE ACETATE
     Dosage: AEROSOL, FOAM
     Route: 048
  85. CORTIFOAM [Suspect]
     Active Substance: HYDROCORTISONE ACETATE
     Dosage: AEROSOL, FOAM
     Route: 065
  86. CORTIFOAM [Suspect]
     Active Substance: HYDROCORTISONE ACETATE
     Dosage: AEROSOL, FOAM
     Route: 048
  87. BUDESONIDE [Suspect]
     Active Substance: BUDESONIDE
     Indication: Product used for unknown indication
     Route: 048
  88. CORTISONE [Suspect]
     Active Substance: CORTISONE
     Indication: Crohn^s disease
     Route: 042
  89. CORTISONE [Suspect]
     Active Substance: CORTISONE
     Indication: Colitis ulcerative
  90. DAPAGLIFLOZIN [Suspect]
     Active Substance: DAPAGLIFLOZIN
     Indication: Ill-defined disorder
     Route: 065
  91. ENTYVIO [Suspect]
     Active Substance: VEDOLIZUMAB
     Indication: Deep vein thrombosis
     Route: 065
  92. ENTYVIO [Suspect]
     Active Substance: VEDOLIZUMAB
     Indication: Colitis ulcerative
     Route: 065
  93. ENTYVIO [Suspect]
     Active Substance: VEDOLIZUMAB
     Route: 065
  94. ENTYVIO [Suspect]
     Active Substance: VEDOLIZUMAB
     Route: 065
  95. ENTYVIO [Suspect]
     Active Substance: VEDOLIZUMAB
     Route: 048
  96. ENTYVIO [Suspect]
     Active Substance: VEDOLIZUMAB
     Route: 048
  97. ENTYVIO [Suspect]
     Active Substance: VEDOLIZUMAB
     Route: 042
  98. ENTYVIO [Suspect]
     Active Substance: VEDOLIZUMAB
     Route: 048
  99. ENTYVIO [Suspect]
     Active Substance: VEDOLIZUMAB
     Dosage: ENTYVIO FOR I.V. INFUSION, POWDER FOR SOLUTION INTRAVENOUS
     Route: 042
  100. ENTYVIO [Suspect]
     Active Substance: VEDOLIZUMAB
     Dosage: ENTYVIO FOR I.V. INFUSION
     Route: 048
  101. EPINEPHRINE HYDROCHLORIDE [Suspect]
     Active Substance: EPINEPHRINE HYDROCHLORIDE
     Indication: Product used for unknown indication
     Route: 065
  102. ESCITALOPRAM [Suspect]
     Active Substance: ESCITALOPRAM OXALATE
     Indication: Product used for unknown indication
     Route: 065
  103. ESOMEPRAZOLE [Suspect]
     Active Substance: ESOMEPRAZOLE
     Indication: Gastritis
     Route: 065
  104. FELODIPINE [Suspect]
     Active Substance: FELODIPINE
     Indication: Hypertension
     Dosage: TABLET (EXTENDED-RELEASE)
     Route: 048
  105. FUROSEMIDE [Suspect]
     Active Substance: FUROSEMIDE
     Indication: Product used for unknown indication
     Route: 065
  106. GABAPENTIN [Suspect]
     Active Substance: GABAPENTIN
     Indication: Product used for unknown indication
     Route: 065
  107. INFLIXIMAB [Suspect]
     Active Substance: INFLIXIMAB
     Indication: Crohn^s disease
     Route: 065
  108. INFLIXIMAB [Suspect]
     Active Substance: INFLIXIMAB
     Indication: Colitis ulcerative
     Route: 042
  109. INFLIXIMAB [Suspect]
     Active Substance: INFLIXIMAB
     Route: 042
  110. INFLIXIMAB [Suspect]
     Active Substance: INFLIXIMAB
     Route: 042
  111. INFLIXIMAB [Suspect]
     Active Substance: INFLIXIMAB
     Route: 042
  112. LEVOTHYROXINE SODIUM [Suspect]
     Active Substance: LEVOTHYROXINE SODIUM
     Indication: Product used for unknown indication
     Route: 065
  113. LISDEXAMFETAMINE DIMESYLATE [Suspect]
     Active Substance: LISDEXAMFETAMINE DIMESYLATE
     Indication: Product used for unknown indication
     Route: 065
  114. MEBEVERINE HYDROCHLORIDE [Suspect]
     Active Substance: MEBEVERINE HYDROCHLORIDE
     Indication: Product used for unknown indication
     Route: 065
  115. MEBEVERINE HYDROCHLORIDE [Suspect]
     Active Substance: MEBEVERINE HYDROCHLORIDE
     Route: 065
  116. OMEPRAZOLE [Suspect]
     Active Substance: OMEPRAZOLE
     Indication: Gastritis
     Route: 065
  117. OMEPRAZOLE [Suspect]
     Active Substance: OMEPRAZOLE
     Route: 065
  118. OXYCODONE HYDROCHLORIDE [Suspect]
     Active Substance: OXYCODONE HYDROCHLORIDE
     Indication: Product used for unknown indication
     Route: 065
  119. PARA-AMINOSALICYLIC ACID [Suspect]
     Active Substance: AMINOSALICYLIC ACID
     Indication: Product used for unknown indication
     Route: 048
  120. PREDNISONE [Suspect]
     Active Substance: PREDNISONE
     Indication: Colitis ulcerative
     Route: 065
  121. PREDNISONE [Suspect]
     Active Substance: PREDNISONE
     Route: 065
  122. PREDNISONE [Suspect]
     Active Substance: PREDNISONE
     Route: 065
  123. PREDNISONE [Suspect]
     Active Substance: PREDNISONE
     Route: 065
  124. PREDNISONE [Suspect]
     Active Substance: PREDNISONE
     Route: 065
  125. ROSUVASTATIN [Suspect]
     Active Substance: ROSUVASTATIN\ROSUVASTATIN CALCIUM
     Indication: Ill-defined disorder
     Route: 065
  126. ROSUVASTATIN [Suspect]
     Active Substance: ROSUVASTATIN\ROSUVASTATIN CALCIUM
     Indication: Blood cholesterol increased
     Route: 065
  127. SULFASALAZINE [Suspect]
     Active Substance: SULFASALAZINE
     Indication: Colitis ulcerative
     Route: 065
  128. SULFASALAZINE [Suspect]
     Active Substance: SULFASALAZINE
     Route: 065
  129. SULFASALAZINE [Suspect]
     Active Substance: SULFASALAZINE
     Route: 065
  130. SULFASALAZINE [Suspect]
     Active Substance: SULFASALAZINE
     Route: 048
  131. SULFASALAZINE [Suspect]
     Active Substance: SULFASALAZINE
     Route: 065
  132. SULFASALAZINE [Suspect]
     Active Substance: SULFASALAZINE
     Route: 048
  133. SULFASALAZINE [Suspect]
     Active Substance: SULFASALAZINE
     Route: 065
  134. SULFASALAZINE [Suspect]
     Active Substance: SULFASALAZINE
     Route: 065
  135. SULFASALAZINE [Suspect]
     Active Substance: SULFASALAZINE
     Route: 065
  136. SULFASALAZINE [Suspect]
     Active Substance: SULFASALAZINE
     Route: 065
  137. TOZINAMERAN [Suspect]
     Active Substance: TOZINAMERAN
     Indication: Product used for unknown indication
     Route: 065
  138. VITAMIN D3 [Suspect]
     Active Substance: CHOLECALCIFEROL
     Indication: Product used for unknown indication
     Route: 065
  139. VITAMIN D3 [Suspect]
     Active Substance: CHOLECALCIFEROL
     Route: 065
  140. WARFARIN [Suspect]
     Active Substance: WARFARIN
     Indication: Deep vein thrombosis
     Dosage: WARFARIN
     Route: 065
  141. WARFARIN [Suspect]
     Active Substance: WARFARIN
     Indication: Colitis ulcerative
     Dosage: WARFARIN SODIUM
     Route: 065
  142. WARFARIN [Suspect]
     Active Substance: WARFARIN
     Dosage: WARFARIN SODIUM
     Route: 048
  143. WARFARIN [Suspect]
     Active Substance: WARFARIN
     Dosage: WARFARIN SODIUM
     Route: 048
  144. WARFARIN [Suspect]
     Active Substance: WARFARIN
     Dosage: WARFARIN SODIUM
     Route: 048
  145. WARFARIN [Suspect]
     Active Substance: WARFARIN
     Dosage: WARFARIN SODIUM
     Route: 048
  146. ACETAMINOPHEN [Concomitant]
     Active Substance: ACETAMINOPHEN
     Indication: Ill-defined disorder
  147. AMLODIPINE [Concomitant]
     Active Substance: AMLODIPINE BESYLATE
     Indication: Product used for unknown indication
     Dosage: AMLODIPINE
  148. AMLODIPINE [Concomitant]
     Active Substance: AMLODIPINE BESYLATE
     Dosage: AMLODIPINE BESYLATE
  149. ATORVASTATIN CALCIUM [Concomitant]
     Active Substance: ATORVASTATIN CALCIUM
     Indication: Product used for unknown indication
  150. BETNOVATE [Concomitant]
     Active Substance: BETAMETHASONE
     Indication: Product used for unknown indication
  151. BISOPROLOL [Concomitant]
     Active Substance: BISOPROLOL\BISOPROLOL FUMARATE
     Indication: Product used for unknown indication
  152. CALCIUM CARBONATE;MAGNESIUM CARBONATE [Concomitant]
     Indication: Product used for unknown indication
  153. CALCIUM CARBONATE\CHOLECALCIFEROL [Concomitant]
     Active Substance: CALCIUM CARBONATE\CHOLECALCIFEROL
     Indication: Product used for unknown indication
  154. CITALOPRAM HYDROCHLORIDE [Concomitant]
     Active Substance: CITALOPRAM HYDROCHLORIDE
     Indication: Product used for unknown indication
  155. CLOBETASONE BUTYRATE [Concomitant]
     Active Substance: CLOBETASONE BUTYRATE
     Indication: Product used for unknown indication
  156. DORZOLAMIDE HYDROCHLORIDE [Concomitant]
     Active Substance: DORZOLAMIDE HYDROCHLORIDE
     Indication: Product used for unknown indication
  157. EMPAGLIFLOZIN [Concomitant]
     Active Substance: EMPAGLIFLOZIN
     Indication: Product used for unknown indication
  158. FESOTERODINE FUMARATE [Concomitant]
     Active Substance: FESOTERODINE FUMARATE
     Indication: Product used for unknown indication
  159. FOLIC ACID [Concomitant]
     Active Substance: FOLIC ACID
     Indication: Product used for unknown indication
  160. HUMIRA [Concomitant]
     Active Substance: ADALIMUMAB
     Indication: Deep vein thrombosis
     Route: 048
  161. HUMIRA [Concomitant]
     Active Substance: ADALIMUMAB
     Indication: Crohn^s disease
     Route: 065
  162. HUMIRA [Concomitant]
     Active Substance: ADALIMUMAB
     Indication: Colitis ulcerative
     Route: 065
  163. HUMIRA [Concomitant]
     Active Substance: ADALIMUMAB
     Dosage: SOLUTION SUBCUTANEOUS
     Route: 048
  164. HUMIRA [Concomitant]
     Active Substance: ADALIMUMAB
     Route: 065
  165. LANSOPRAZOLE [Concomitant]
     Active Substance: LANSOPRAZOLE
     Indication: Product used for unknown indication
     Dosage: CAPSULE, DELAYED RELEASE
  166. LYRICA [Concomitant]
     Active Substance: PREGABALIN
     Indication: Product used for unknown indication
  167. POLYETHYLENE GLYCOL 3350\POTASSIUM CHLORIDE\SODIUM BICARBONATE\SODIUM [Concomitant]
     Active Substance: POLYETHYLENE GLYCOL 3350\POTASSIUM CHLORIDE\SODIUM BICARBONATE\SODIUM CHLORIDE
     Indication: Product used for unknown indication
  168. METHOTREXATE [Concomitant]
     Active Substance: METHOTREXATE
     Indication: Colitis ulcerative
  169. METHOTREXATE [Concomitant]
     Active Substance: METHOTREXATE
  170. METHOTREXATE [Concomitant]
     Active Substance: METHOTREXATE
  171. NITROFURANTOIN [Concomitant]
     Active Substance: NITROFURANTOIN
     Indication: Product used for unknown indication
  172. PARAFFIN [Concomitant]
     Active Substance: PARAFFIN
     Indication: Product used for unknown indication
  173. PRAVASTATIN [Concomitant]
     Active Substance: PRAVASTATIN
     Indication: Product used for unknown indication
  174. RAMIPRIL [Concomitant]
     Active Substance: RAMIPRIL
     Indication: Ill-defined disorder
  175. RIVAROXABAN [Concomitant]
     Active Substance: RIVAROXABAN
     Indication: Product used for unknown indication
  176. TAMSULOSIN HYDROCHLORIDE [Concomitant]
     Active Substance: TAMSULOSIN HYDROCHLORIDE
     Indication: Ill-defined disorder
  177. TETRAHYDROZOLINE HYDROCHLORIDE [Concomitant]
     Active Substance: TETRAHYDROZOLINE HYDROCHLORIDE
     Indication: Product used for unknown indication
  178. XELJANZ [Concomitant]
     Active Substance: TOFACITINIB CITRATE
     Indication: Colitis ulcerative
     Route: 048
  179. XELJANZ [Concomitant]
     Active Substance: TOFACITINIB CITRATE
     Route: 048
  180. LATANOPROST [Concomitant]
     Active Substance: LATANOPROST
     Indication: Product used for unknown indication
     Route: 065
  181. LATANOPROST [Concomitant]
     Active Substance: LATANOPROST
     Dosage: SOLUTION OPHTHALMIC
  182. CALCIUM CARBONATE;SODIUM ALGINATE;SODIUM BICARBONATE [Concomitant]
     Indication: Product used for unknown indication

REACTIONS (52)
  - Abdominal discomfort [Not Recovered/Not Resolved]
  - Arthritis [Not Recovered/Not Resolved]
  - Bronchiectasis [Not Recovered/Not Resolved]
  - COVID-19 [Recovered/Resolved]
  - Burns second degree [Not Recovered/Not Resolved]
  - Cardiac murmur [Not Recovered/Not Resolved]
  - Catarrh [Not Recovered/Not Resolved]
  - Cerebrovascular accident [Not Recovered/Not Resolved]
  - Colitis ulcerative [Not Recovered/Not Resolved]
  - Colitis ulcerative [Not Recovered/Not Resolved]
  - Condition aggravated [Not Recovered/Not Resolved]
  - Confusional state [Not Recovered/Not Resolved]
  - Deep vein thrombosis [Not Recovered/Not Resolved]
  - Dysgeusia [Not Recovered/Not Resolved]
  - Eczema [Recovered/Resolved]
  - Frequent bowel movements [Not Recovered/Not Resolved]
  - Gingival pain [Not Recovered/Not Resolved]
  - Haematochezia [Not Recovered/Not Resolved]
  - Hypopnoea [Not Recovered/Not Resolved]
  - Impaired work ability [Not Recovered/Not Resolved]
  - Loss of personal independence in daily activities [Not Recovered/Not Resolved]
  - Loss of personal independence in daily activities [Not Recovered/Not Resolved]
  - Migraine [Not Recovered/Not Resolved]
  - Nightmare [Recovered/Resolved]
  - Pain [Recovered/Resolved]
  - Pain in extremity [Not Recovered/Not Resolved]
  - Parosmia [Not Recovered/Not Resolved]
  - Pulmonary embolism [Not Recovered/Not Resolved]
  - Rectal haemorrhage [Not Recovered/Not Resolved]
  - Rhinitis [Not Recovered/Not Resolved]
  - Somnolence [Not Recovered/Not Resolved]
  - Steroid dependence [Not Recovered/Not Resolved]
  - Stress [Not Recovered/Not Resolved]
  - Swollen tongue [Recovered/Resolved]
  - Systemic lupus erythematosus [Not Recovered/Not Resolved]
  - Tinnitus [Not Recovered/Not Resolved]
  - Tubulointerstitial nephritis [Not Recovered/Not Resolved]
  - Weight decreased [Not Recovered/Not Resolved]
  - Pyrexia [Not Recovered/Not Resolved]
  - Rash [Not Recovered/Not Resolved]
  - Depression [Recovered/Resolved]
  - Palpitations [Not Recovered/Not Resolved]
  - Vertigo [Not Recovered/Not Resolved]
  - Headache [Recovered/Resolved]
  - Fatigue [Recovered/Resolved]
  - Drug ineffective [Not Recovered/Not Resolved]
  - Inappropriate schedule of product administration [Not Recovered/Not Resolved]
  - Intentional product use issue [Not Recovered/Not Resolved]
  - Medication error [Not Recovered/Not Resolved]
  - Off label use [Not Recovered/Not Resolved]
  - Product use in unapproved indication [Not Recovered/Not Resolved]
  - Accidental overdose [Not Recovered/Not Resolved]
